FAERS Safety Report 25728171 (Version 1)
Quarter: 2025Q3

REPORT INFORMATION
  Report Type: Spontaneous
  Country: CN (occurrence: CN)
  Receive Date: 20250826
  Receipt Date: 20250826
  Transmission Date: 20251021
  Serious: Yes (Other)
  Sender: PFIZER
  Company Number: CN-PFIZER INC-PV202500101331

PATIENT
  Age: 29 Year
  Sex: Male

DRUGS (1)
  1. XYNTHA [Suspect]
     Active Substance: MOROCTOCOG ALFA

REACTIONS (2)
  - Illness [Unknown]
  - Haemorrhage [Unknown]
